FAERS Safety Report 8957505 (Version 1)
Quarter: 2012Q4

REPORT INFORMATION
  Report Type: Report from Study
  Country: US (occurrence: US)
  Receive Date: 20121211
  Receipt Date: 20121211
  Transmission Date: 20130627
  Serious: Yes (Hospitalization)
  Sender: FDA-Public Use
  Company Number: US-TEVA-374680USA

PATIENT
  Age: 50 Year
  Sex: Male
  Weight: 76 kg

DRUGS (28)
  1. METHOTREXATE [Suspect]
     Dosage: 2.8571 Milligram Daily;
     Dates: start: 20071225
  2. METHOTREXATE [Suspect]
     Dates: start: 20090217, end: 20090805
  3. METHOTREXATE [Suspect]
     Dates: start: 20090825
  4. PLACEBO [Suspect]
     Indication: RHEUMATOID ARTHRITIS
     Dosage: Day 1 and 15 wk 24+week 26
     Route: 042
     Dates: start: 20080429
  5. PREDNISONE [Suspect]
     Dosage: 10 Milligram Daily;
     Dates: start: 20070530
  6. PREDNISONE [Suspect]
     Dates: start: 20090216
  7. ASPIRIN [Suspect]
     Route: 048
     Dates: start: 20081031
  8. ASPIRIN [Suspect]
     Route: 048
     Dates: start: 20090216
  9. FOLIC ACID [Concomitant]
     Route: 048
     Dates: start: 20071113
  10. HYDROCODONE [Concomitant]
     Dosage: 10/500 MG
     Route: 048
     Dates: start: 20090219
  11. HYDROCODONE [Concomitant]
     Dosage: 10/650 MG
     Dates: start: 20090806, end: 20090815
  12. HYDROCODONE [Concomitant]
     Dosage: 20/650 MG
     Dates: start: 20090815
  13. COREG [Concomitant]
     Dates: start: 20080524
  14. SPIRONOLACTONE [Concomitant]
     Route: 048
     Dates: start: 20080527
  15. SPIRONOLACTONE [Concomitant]
     Route: 048
     Dates: start: 20090216
  16. NITROQUICK [Concomitant]
     Dates: start: 20080528
  17. LOVASTATIN [Concomitant]
     Dates: start: 20090216
  18. COMBIVENT [Concomitant]
     Dosage: 2 puffs
     Dates: start: 200902
  19. FUROSEMIDE [Concomitant]
     Dosage: 22.8571 Milligram Daily;
     Dates: start: 20090216
  20. FUROSEMIDE [Concomitant]
     Dosage: 34.2857 Milligram Daily;
     Dates: start: 20090217
  21. LISINOPRIL [Concomitant]
     Dates: start: 20080526
  22. DILAUDID [Concomitant]
     Dates: start: 20090210, end: 20090210
  23. VERSED [Concomitant]
     Dates: start: 20090210, end: 20090210
  24. PANTOPRAZOLE [Concomitant]
     Dates: start: 20090415
  25. COUMADIN [Concomitant]
     Dates: start: 20080728
  26. COUMADIN [Concomitant]
     Dosage: 2.8571 Milligram Daily;
     Dates: start: 20090630, end: 20090807
  27. COUMADIN [Concomitant]
     Dates: start: 20090812, end: 20090920
  28. TEMAZEPAM [Concomitant]
     Dates: start: 20090216

REACTIONS (4)
  - Pneumonia [Recovered/Resolved]
  - Joint dislocation [Recovered/Resolved with Sequelae]
  - Colitis [Recovered/Resolved]
  - Post procedural infection [Recovered/Resolved with Sequelae]
